FAERS Safety Report 19995491 (Version 1)
Quarter: 2021Q4

REPORT INFORMATION
  Report Type: Spontaneous
  Country: US (occurrence: US)
  Receive Date: 20211025
  Receipt Date: 20211025
  Transmission Date: 20220303
  Serious: No
  Sender: FDA-Public Use
  Company Number: None

PATIENT
  Sex: Female

DRUGS (1)
  1. CETROTIDE [Suspect]
     Active Substance: CETRORELIX ACETATE
     Indication: Infertility female
     Dosage: ?          OTHER DOSE:AS DIRECTED;
     Route: 058
     Dates: start: 202110

REACTIONS (3)
  - Device malfunction [None]
  - Needle issue [None]
  - Device leakage [None]
